FAERS Safety Report 4863841-2 (Version None)
Quarter: 2005Q4

REPORT INFORMATION
  Report Type: 
  Country: None (occurrence: None)
  Receive Date: 20051222
  Receipt Date: 20051010
  Transmission Date: 20060501
  Serious: No
  Sender: FDA-Public Use
  Company Number: US-GLAXOSMITHKLINE-A0577671A

PATIENT
  Sex: Male

DRUGS (1)
  1. FLONASE [Suspect]
     Dosage: 1SPR UNKNOWN
     Route: 045

REACTIONS (7)
  - AGITATION [None]
  - ANXIETY [None]
  - ILL-DEFINED DISORDER [None]
  - INCREASED APPETITE [None]
  - INSOMNIA [None]
  - LARYNGITIS [None]
  - PALPITATIONS [None]
